FAERS Safety Report 13738486 (Version 1)
Quarter: 2017Q3

REPORT INFORMATION
  Report Type: Spontaneous
  Country: US (occurrence: US)
  Receive Date: 20170710
  Receipt Date: 20170710
  Transmission Date: 20171127
  Serious: Yes (Other)
  Sender: FDA-Public Use
  Company Number: US-SAOL THERAPEUTICS-2016SAO01148

PATIENT
  Age: 55 Year
  Sex: Female
  Weight: 76.19 kg

DRUGS (11)
  1. COMPOUNDED BACLOFEN [Suspect]
     Active Substance: BACLOFEN
     Indication: PAIN
     Dosage: 87 ?G, \DAY
     Route: 037
     Dates: start: 2001
  2. ESTRACE [Concomitant]
     Active Substance: ESTRADIOL
  3. NORCO [Concomitant]
     Active Substance: ACETAMINOPHEN\HYDROCODONE BITARTRATE
  4. LASIX [Concomitant]
     Active Substance: FUROSEMIDE
  5. MIRALAX [Concomitant]
     Active Substance: POLYETHYLENE GLYCOL 3350
  6. HYDROXYZINE [Concomitant]
     Active Substance: HYDROXYZINE HYDROCHLORIDE
  7. DILAUDID [Suspect]
     Active Substance: HYDROMORPHONE HYDROCHLORIDE
     Dosage: 5.2 MG, \DAY
     Route: 037
  8. LINZESS [Concomitant]
     Active Substance: LINACLOTIDE
  9. STATIN [Concomitant]
     Active Substance: UNSPECIFIED INGREDIENT
  10. POTASSIUM [Concomitant]
     Active Substance: POTASSIUM
  11. SYNTHROID [Concomitant]
     Active Substance: LEVOTHYROXINE SODIUM

REACTIONS (7)
  - Withdrawal syndrome [Unknown]
  - Device failure [Unknown]
  - Influenza like illness [Unknown]
  - Hyperhidrosis [Unknown]
  - Off label use [Unknown]
  - Drug ineffective for unapproved indication [Recovered/Resolved]
  - Nausea [Unknown]

NARRATIVE: CASE EVENT DATE: 20161114
